FAERS Safety Report 4778760-X (Version None)
Quarter: 2005Q3

REPORT INFORMATION
  Report Type: 
  Country: None (occurrence: None)
  Receive Date: 20050922
  Receipt Date: 20050909
  Transmission Date: 20060218
  Serious: Yes (Death, Hospitalization)
  Sender: FDA-Public Use
  Company Number: 2005126991

PATIENT
  Age: 52 Year
  Sex: Female

DRUGS (3)
  1. HEPARIN SODIUM [Suspect]
     Indication: ILL-DEFINED DISORDER
     Dates: start: 19970101
  2. CYCLOPHOSPHAMIDE [Suspect]
     Indication: ILL-DEFINED DISORDER
     Dates: start: 19970101
  3. ALTEPLASE (ALTEPLASE) [Suspect]
     Indication: ILL-DEFINED DISORDER
     Dates: start: 19970101

REACTIONS (8)
  - ASCITES [None]
  - ENCEPHALOPATHY [None]
  - HEPATIC FAILURE [None]
  - MULTI-ORGAN FAILURE [None]
  - REFUSAL OF TREATMENT BY PATIENT [None]
  - RENAL IMPAIRMENT [None]
  - STEM CELL TRANSPLANT [None]
  - VENOOCCLUSIVE DISEASE [None]
